FAERS Safety Report 8953395 (Version 2)
Quarter: 2013Q1

REPORT INFORMATION
  Report Type: Spontaneous
  Country: US (occurrence: US)
  Receive Date: 20121206
  Receipt Date: 20130102
  Transmission Date: 20140127
  Serious: Yes (Other)
  Sender: FDA-Public Use
  Company Number: US-ELI_LILLY_AND_COMPANY-US201211009111

PATIENT
  Age: 67 Year
  Sex: Female

DRUGS (3)
  1. HUMULIN REGULAR [Suspect]
     Indication: TYPE 2 DIABETES MELLITUS
     Dosage: UNK, PRN
  2. HUMULIN REGULAR [Suspect]
     Indication: TYPE 2 DIABETES MELLITUS
     Dosage: UNK, PRN
  3. LANTUS [Concomitant]

REACTIONS (7)
  - VIIth nerve paralysis [Not Recovered/Not Resolved]
  - Blood glucose increased [Recovered/Resolved]
  - Blood glucose decreased [Recovered/Resolved]
  - Visual impairment [Not Recovered/Not Resolved]
  - Drug ineffective [Unknown]
  - Gait disturbance [Unknown]
  - Unevaluable event [Recovered/Resolved]
